FAERS Safety Report 11604788 (Version 1)
Quarter: 2015Q4

REPORT INFORMATION
  Report Type: Spontaneous
  Country: FR (occurrence: None)
  Receive Date: 20151006
  Receipt Date: 20151006
  Transmission Date: 20160304
  Serious: Yes (Disabling, Other)
  Sender: FDA-Public Use
  Company Number: None

PATIENT
  Age: 59 Year
  Sex: Female
  Weight: 70 kg

DRUGS (10)
  1. ENALAPRIL [Concomitant]
     Active Substance: ENALAPRIL
  2. INDACATEROL [Concomitant]
     Active Substance: INDACATEROL
  3. ESCITALOPRAM [Concomitant]
     Active Substance: ESCITALOPRAM OXALATE
  4. IPRATROPRIUM BROMIDE [Concomitant]
  5. FUTICASONE/SALMETEROL [Concomitant]
  6. TRAMADOL. [Concomitant]
     Active Substance: TRAMADOL
  7. DESLORATADINE. [Concomitant]
     Active Substance: DESLORATADINE
  8. CIPROFLOXACIN. [Suspect]
     Active Substance: CIPROFLOXACIN
     Indication: LOWER RESPIRATORY TRACT INFECTION
     Dosage: 2 PILLS
     Route: 048
     Dates: start: 20110130, end: 20110210
  9. VENTOLIN [Concomitant]
     Active Substance: ALBUTEROL SULFATE
  10. MONTELUKAST [Concomitant]
     Active Substance: MONTELUKAST SODIUM

REACTIONS (4)
  - Tendon pain [None]
  - Peripheral swelling [None]
  - Sensory disturbance [None]
  - Gait disturbance [None]

NARRATIVE: CASE EVENT DATE: 20110130
